FAERS Safety Report 15712940 (Version 1)
Quarter: 2018Q4

REPORT INFORMATION
  Report Type: Spontaneous
  Country: US (occurrence: US)
  Receive Date: 20181211
  Receipt Date: 20181211
  Transmission Date: 20190205
  Serious: No
  Sender: FDA-Public Use
  Company Number: None

PATIENT
  Age: 54 Year
  Sex: Male
  Weight: 102.6 kg

DRUGS (2)
  1. BENZONATATE. [Suspect]
     Active Substance: BENZONATATE
     Indication: COUGH
     Dates: start: 20181208, end: 20181208
  2. BENZONATATE. [Suspect]
     Active Substance: BENZONATATE
     Indication: PNEUMONITIS
     Dates: start: 20181208, end: 20181208

REACTIONS (3)
  - Vision blurred [None]
  - Mydriasis [None]
  - Balance disorder [None]

NARRATIVE: CASE EVENT DATE: 20181209
